FAERS Safety Report 18494670 (Version 2)
Quarter: 2020Q4

REPORT INFORMATION
  Report Type: Spontaneous
  Country: HR (occurrence: HR)
  Receive Date: 20201112
  Receipt Date: 20201118
  Transmission Date: 20210114
  Serious: Yes (Other)
  Sender: FDA-Public Use
  Company Number: HR-ABBVIE-20K-216-3644339-00

PATIENT
  Age: 76 Year
  Sex: Male

DRUGS (7)
  1. VENCLYXTO [Interacting]
     Active Substance: VENETOCLAX
     Route: 048
     Dates: start: 202007, end: 202007
  2. VENCLYXTO [Suspect]
     Active Substance: VENETOCLAX
     Indication: CHRONIC LYMPHOCYTIC LEUKAEMIA
     Dosage: GRADUAL INCREASE OF DOSE UP TO 400 MG
     Route: 048
     Dates: start: 201908, end: 201910
  3. AMIODARONE [Interacting]
     Active Substance: AMIODARONE
     Indication: PRODUCT USED FOR UNKNOWN INDICATION
     Route: 065
  4. VENCLYXTO [Interacting]
     Active Substance: VENETOCLAX
     Route: 048
     Dates: start: 202007, end: 202007
  5. VENCLYXTO [Interacting]
     Active Substance: VENETOCLAX
     Route: 048
     Dates: start: 202007, end: 202007
  6. VENCLYXTO [Interacting]
     Active Substance: VENETOCLAX
     Route: 048
     Dates: start: 201910, end: 202007
  7. VENCLYXTO [Interacting]
     Active Substance: VENETOCLAX
     Route: 048
     Dates: start: 202007

REACTIONS (10)
  - Gait inability [Unknown]
  - Leukopenia [Recovered/Resolved]
  - Neutropenia [Not Recovered/Not Resolved]
  - Thrombocytopenia [Recovered/Resolved]
  - Leukopenia [Not Recovered/Not Resolved]
  - Asthenia [Unknown]
  - Drug interaction [Unknown]
  - Muscle spasms [Unknown]
  - Neutropenia [Recovered/Resolved]
  - Fatigue [Unknown]

NARRATIVE: CASE EVENT DATE: 201910
